FAERS Safety Report 8814869 (Version 2)
Quarter: 2012Q4

REPORT INFORMATION
  Report Type: Report from Study
  Country: CA (occurrence: CA)
  Receive Date: 20120928
  Receipt Date: 20121025
  Transmission Date: 20130627
  Serious: Yes (Hospitalization, Other)
  Sender: FDA-Public Use
  Company Number: CA-ROCHE-1138358

PATIENT
  Age: 75 Year
  Sex: Female
  Weight: 93.52 kg

DRUGS (9)
  1. TOCILIZUMAB [Suspect]
     Indication: RHEUMATOID ARTHRITIS
     Route: 042
     Dates: start: 20101117
  2. TOCILIZUMAB [Suspect]
     Route: 042
     Dates: start: 20110926
  3. METHOTREXATE [Concomitant]
     Route: 048
  4. SYNTHROID [Concomitant]
  5. CRESTOR [Concomitant]
  6. OMEGA 3 FATTY ACIDS [Concomitant]
  7. MULTIVITAMIN [Concomitant]
  8. GLUCOSAMINE/CHONDROITIN [Concomitant]
  9. FOLIC ACID [Concomitant]

REACTIONS (2)
  - Limb reconstructive surgery [Unknown]
  - Pneumonia [Unknown]
